FAERS Safety Report 25636616 (Version 2)
Quarter: 2025Q3

REPORT INFORMATION
  Report Type: Spontaneous
  Country: US (occurrence: US)
  Receive Date: 20250804
  Receipt Date: 20250822
  Transmission Date: 20251021
  Serious: Yes (Death, Hospitalization)
  Sender: TEVA
  Company Number: US-TEVA-VS-3357833

PATIENT
  Age: 34 Year
  Sex: Female

DRUGS (5)
  1. FLUCONAZOLE [Suspect]
     Active Substance: FLUCONAZOLE
     Indication: Oesophageal candidiasis
     Route: 065
  2. METHYLPREDNISOLONE [Suspect]
     Active Substance: METHYLPREDNISOLONE
     Indication: Haemophagocytic lymphohistiocytosis
     Dosage: PULSE THERAPY FOR 5 DAYS
     Route: 065
  3. SULFAMETHOXAZOLE\TRIMETHOPRIM [Concomitant]
     Active Substance: SULFAMETHOXAZOLE\TRIMETHOPRIM
     Indication: Pneumocystis jirovecii pneumonia
     Route: 065
  4. MICAFUNGIN [Concomitant]
     Active Substance: MICAFUNGIN SODIUM
     Indication: Oesophageal candidiasis
     Route: 065
  5. GANCICLOVIR [Concomitant]
     Active Substance: GANCICLOVIR
     Indication: Cytomegalovirus viraemia
     Route: 065

REACTIONS (1)
  - Drug ineffective [Fatal]
